FAERS Safety Report 12300373 (Version 1)
Quarter: 2016Q2

REPORT INFORMATION
  Report Type: Spontaneous
  Country: US (occurrence: US)
  Receive Date: 20160425
  Receipt Date: 20160425
  Transmission Date: 20160815
  Serious: Yes (Hospitalization)
  Sender: FDA-Public Use
  Company Number: US-ABBVIE-16P-163-1573866-00

PATIENT
  Age: 50 Year
  Sex: Male
  Weight: 57.66 kg

DRUGS (2)
  1. TECHNIVIE [Suspect]
     Active Substance: OMBITASVIR HEMINONAHYDRATE\PARITAPREVIR DIHYDRATE\RITONAVIR
     Indication: CHRONIC HEPATITIS C
     Dosage: 12.5/75/50
     Route: 048
     Dates: start: 20151130, end: 20160212
  2. RIBAVIRIN. [Suspect]
     Active Substance: RIBAVIRIN
     Indication: CHRONIC HEPATITIS C
     Route: 048
     Dates: start: 20151130, end: 20160212

REACTIONS (2)
  - Asthenia [Recovered/Resolved]
  - Fatigue [Recovered/Resolved]

NARRATIVE: CASE EVENT DATE: 20160212
